FAERS Safety Report 24722485 (Version 1)
Quarter: 2024Q4

REPORT INFORMATION
  Report Type: Spontaneous
  Country: US (occurrence: US)
  Receive Date: 20241211
  Receipt Date: 20241211
  Transmission Date: 20250115
  Serious: No
  Sender: AMGEN
  Company Number: US-AMGEN-USASP2024240585

PATIENT
  Age: 78 Year
  Sex: Male

DRUGS (1)
  1. TAVNEOS [Suspect]
     Active Substance: AVACOPAN
     Indication: Product used for unknown indication
     Dosage: 30 MILLIGRAM, BID/TWICE A DAY (3X10MG TABLETS)
     Route: 065
     Dates: start: 20241015

REACTIONS (1)
  - Erythema annulare [Not Recovered/Not Resolved]

NARRATIVE: CASE EVENT DATE: 20241101
